FAERS Safety Report 10392430 (Version 2)
Quarter: 2014Q3

REPORT INFORMATION
  Report Type: Spontaneous
  Country: JP (occurrence: JP)
  Receive Date: 20140819
  Receipt Date: 20140909
  Transmission Date: 20150326
  Serious: Yes (Disabling)
  Sender: FDA-Public Use
  Company Number: JP-BAYER-2014-121709

PATIENT
  Age: 28 Year
  Sex: Female
  Weight: 53.61 kg

DRUGS (1)
  1. YAZ [Suspect]
     Active Substance: DROSPIRENONE\ETHINYL ESTRADIOL
     Indication: DYSMENORRHOEA
     Dosage: 1 DF, QD
     Route: 048
     Dates: start: 20140723, end: 20140809

REACTIONS (2)
  - Dyskinesia [Recovered/Resolved with Sequelae]
  - Choreoathetosis [Recovered/Resolved with Sequelae]

NARRATIVE: CASE EVENT DATE: 20140811
